FAERS Safety Report 8094560-X (Version None)
Quarter: 2012Q1

REPORT INFORMATION
  Report Type: 
  Country: None (occurrence: None)
  Receive Date: 20120125
  Receipt Date: 20120113
  Transmission Date: 20120608
  Serious: Yes (Other)
  Sender: FDA-Public Use
  Company Number: TPA2011A08815

PATIENT
  Age: 50 Year
  Sex: Male

DRUGS (35)
  1. CYMBALTA [Concomitant]
  2. METFORMIN HCL [Concomitant]
  3. NAPROXEN [Concomitant]
  4. PRILOSEC [Concomitant]
  5. CYCLOBENZAPRINE HYDROCHLORIDE [Concomitant]
  6. ACIPHEX [Concomitant]
  7. ACTOPLUS MET [Suspect]
     Indication: DIABETES MELLITUS MANAGEMENT
     Dosage: 100 MG/200 MG; 15 MG/500 MG
  8. CIALIS [Concomitant]
  9. PAROXETINE ER (PAROXETINE) [Concomitant]
  10. SIMVASTATIN [Concomitant]
  11. GLUCOTROL XL [Concomitant]
  12. VIAGRA [Concomitant]
  13. NEXIUM [Concomitant]
  14. JANUMET (METFORMIN HYDROCLORIDE, SITAGLIPTIN PHOSPHATE) [Concomitant]
  15. FORTAMET [Concomitant]
  16. VIOXX [Suspect]
     Dosage: 25 MCI
  17. GLIPIZIDE [Concomitant]
  18. CEPHALEXIN [Concomitant]
  19. ACTOS [Suspect]
     Indication: DIABETES MELLITUS MANAGEMENT
     Dosage: 15 MG
  20. UNSPECIFIED NSAID'S (NSAID'S) [Suspect]
  21. LIPITOR [Concomitant]
  22. COZAAR [Concomitant]
  23. PRISTIQ [Concomitant]
  24. GLUMETZA [Concomitant]
  25. GLUCOPHAGE [Concomitant]
  26. CLARITIN-D (PSEUDOEPHERDRINESULFATE, LORATADINE) [Concomitant]
  27. PAXIL [Concomitant]
  28. VYTORIN [Concomitant]
  29. MOBIC [Concomitant]
  30. AMBEIN C IV (ZOLPIDEM TARTRATE) [Concomitant]
  31. CELEBREX [Concomitant]
  32. BEXTRA (PARECOXIB SODIUM) [Concomitant]
  33. ASPIRIN [Concomitant]
  34. PROZAC [Concomitant]
  35. PALGIC (CARBINOXAMIDE MALEATE) [Concomitant]

REACTIONS (15)
  - INTERVERTEBRAL DISC DEGENERATION [None]
  - MEMORY IMPAIRMENT [None]
  - CARDIAC VALVE DISEASE [None]
  - IMPAIRED HEALING [None]
  - URINARY TRACT INFECTION [None]
  - GASTROINTESTINAL DISORDER [None]
  - DEPRESSION [None]
  - MYOCARDIAL INFARCTION [None]
  - ARTHRALGIA [None]
  - BONE DISORDER [None]
  - BONE DENSITY DECREASED [None]
  - ROAD TRAFFIC ACCIDENT [None]
  - PANIC DISORDER [None]
  - ISCHAEMIC STROKE [None]
  - ATTENTION DEFICIT/HYPERACTIVITY DISORDER [None]
